FAERS Safety Report 9034647 (Version 2)
Quarter: 2013Q1

REPORT INFORMATION
  Report Type: Spontaneous
  Country: GB (occurrence: None)
  Receive Date: 20130115
  Receipt Date: 20130225
  Transmission Date: 20140127
  Serious: Yes (Life-Threatening, Hospitalization)
  Sender: FDA-Public Use
  Company Number: 2012AP004483

PATIENT
  Age: 74 Year
  Sex: Female

DRUGS (13)
  1. OMEPRAZOLE [Suspect]
     Indication: PRODUCT USED FOR UNKNOWN INDICATION
     Dosage: UNKNOWN
  2. CIPROFLOXACIN (CIPROFLOXACIN) [Suspect]
     Indication: PNEUMONIA
     Dosage: UNKNOWN
     Route: 048
     Dates: start: 20110215, end: 20110303
  3. CIPROFLOXACIN (CIPROFLOXACIN) [Suspect]
     Dosage: UNKNOWN
     Route: 048
     Dates: start: 20110215, end: 20110303
  4. TAZOCIN (PIP/TAZO) [Suspect]
     Indication: PERITONITIS BACTERIAL
     Dosage: 4.5 G; UNKNOWN; IV; TID?UNKNOWN :  04MAY2011?
     Route: 042
     Dates: start: 20110211, end: 20110215
  5. FUROSEMIDE (FUROSEMIDE) [Concomitant]
  6. LACTULOSE (LACTULOSE) [Concomitant]
  7. MULTIVITAMIN [Concomitant]
  8. PANCREATIN (PANCREATIN) [Concomitant]
  9. PHYTOMENADIONE (PHYTOMENADIONE) [Concomitant]
  10. SPIRONOLACTONE (SPIRONOLACTONE) [Concomitant]
  11. ADCAL-D3 (LEKOVIT CA) [Concomitant]
  12. BENZYDAMINE (BENZYDAMINE) [Concomitant]
  13. FOLIC ACID [Concomitant]

REACTIONS (4)
  - Clostridium difficile infection [None]
  - Diarrhoea [None]
  - Megacolon [None]
  - Peritonitis bacterial [None]
